FAERS Safety Report 16911780 (Version 4)
Quarter: 2019Q4

REPORT INFORMATION
  Report Type: Spontaneous
  Country: US (occurrence: US)
  Receive Date: 20191014
  Receipt Date: 20191112
  Transmission Date: 20200122
  Serious: No
  Sender: FDA-Public Use
  Company Number: US-SA-2019SA278855

PATIENT
  Sex: Male

DRUGS (2)
  1. VITAMINS NOS [Concomitant]
     Active Substance: VITAMINS
     Dosage: 400 MG, TWICE DAILY
     Route: 065
  2. MULTAQ [Suspect]
     Active Substance: DRONEDARONE
     Dosage: UNK UNK, UNK
     Route: 065
     Dates: start: 20160930

REACTIONS (3)
  - Glomerular filtration rate decreased [Recovering/Resolving]
  - Dehydration [Unknown]
  - Blood creatinine increased [Recovering/Resolving]
